FAERS Safety Report 21476561 (Version 4)
Quarter: 2023Q1

REPORT INFORMATION
  Report Type: Report from Study
  Country: CN (occurrence: None)
  Receive Date: 20221019
  Receipt Date: 20230116
  Transmission Date: 20230417
  Serious: Yes (Hospitalization)
  Sender: FDA-Public Use
  Company Number: CN-ROCHE-3201066

PATIENT
  Age: 72 Year
  Sex: Male
  Weight: 58 kg

DRUGS (15)
  1. ATEZOLIZUMAB [Suspect]
     Active Substance: ATEZOLIZUMAB
     Indication: Thymic carcinoma
     Dosage: ON 02/SEP/2022, RECEIVED MOST RECENT DOSE OF ATEZOLIZUMAB PRIOR TO SAE/AESI ONSET
     Route: 041
     Dates: start: 20220722
  2. BISOPROLOL FUMARATE [Concomitant]
     Active Substance: BISOPROLOL FUMARATE
     Dates: start: 20210112
  3. INDACATEROL [Concomitant]
     Active Substance: INDACATEROL
     Dates: start: 20220601
  4. ALBUTEROL SULFATE [Concomitant]
     Active Substance: ALBUTEROL SULFATE
     Dates: start: 20220722
  5. OXYCODONE HYDROCHLORIDE [Concomitant]
     Active Substance: OXYCODONE HYDROCHLORIDE
     Dates: start: 202209
  6. FUROSEMIDE [Concomitant]
     Active Substance: FUROSEMIDE
     Dates: start: 20221002
  7. FUROSEMIDE [Concomitant]
     Active Substance: FUROSEMIDE
     Dates: start: 20220923, end: 20221001
  8. SPIRONOLACTONE [Concomitant]
     Active Substance: SPIRONOLACTONE
     Dates: start: 20221002
  9. SPIRONOLACTONE [Concomitant]
     Active Substance: SPIRONOLACTONE
     Dates: start: 20220923, end: 20221001
  10. DYPHYLLINE [Concomitant]
     Active Substance: DYPHYLLINE
     Dates: start: 20221026, end: 20221026
  11. METHOXYPHENAMINE [Concomitant]
     Active Substance: METHOXYPHENAMINE
     Dosage: 2 CAPSULES
     Dates: start: 20220902, end: 20220922
  12. CIMETIDINE [Concomitant]
     Active Substance: CIMETIDINE
     Dates: start: 20220923, end: 20220930
  13. CARBONATE [Concomitant]
  14. DABIGATRAN ETEXILATE [Concomitant]
     Active Substance: DABIGATRAN ETEXILATE
     Dates: start: 20220927, end: 20221011
  15. PROPAFENONE HYDROCHLORIDE [Concomitant]
     Active Substance: PROPAFENONE HYDROCHLORIDE
     Dates: start: 20220928, end: 20221005

REACTIONS (3)
  - Chest discomfort [Not Recovered/Not Resolved]
  - Asphyxia [Not Recovered/Not Resolved]
  - Immune-mediated lung disease [Not Recovered/Not Resolved]

NARRATIVE: CASE EVENT DATE: 20220909
